FAERS Safety Report 7051495-9 (Version None)
Quarter: 2010Q4

REPORT INFORMATION
  Report Type: 
  Country: None (occurrence: None)
  Receive Date: 20101019
  Receipt Date: 20101012
  Transmission Date: 20110411
  Serious: Yes (Other)
  Sender: FDA-Public Use
  Company Number: B0679651A

PATIENT
  Age: 6 Year
  Sex: Female

DRUGS (4)
  1. LAMOTRIGINE [Suspect]
     Indication: EPILEPSY
     Dosage: 15MG PER DAY
     Route: 048
  2. CARBAMAZEPINE [Concomitant]
     Indication: EPILEPSY
     Dosage: 260MG PER DAY
     Route: 048
  3. CARBAMAZEPINE [Concomitant]
     Dosage: 400MG PER DAY
     Route: 048
  4. CLOBAZAM [Concomitant]
     Indication: EPILEPSY
     Dosage: 20MG PER DAY
     Route: 048

REACTIONS (7)
  - COGNITIVE DISORDER [None]
  - DEPRESSED LEVEL OF CONSCIOUSNESS [None]
  - ELECTROENCEPHALOGRAM ABNORMAL [None]
  - EPILEPSY [None]
  - PARTIAL SEIZURES [None]
  - SALIVARY HYPERSECRETION [None]
  - STATUS EPILEPTICUS [None]
